FAERS Safety Report 17453789 (Version 2)
Quarter: 2020Q2

REPORT INFORMATION
  Report Type: Spontaneous
  Country: US (occurrence: US)
  Receive Date: 20200224
  Receipt Date: 20200504
  Transmission Date: 20200713
  Serious: Yes (Hospitalization, Other)
  Sender: FDA-Public Use
  Company Number: US-TASMAN PHARMA, INC.-2020TSM00058

PATIENT
  Sex: Female
  Weight: 76.19 kg

DRUGS (18)
  1. CLOZAPINE. [Suspect]
     Active Substance: CLOZAPINE
     Indication: OBSESSIVE THOUGHTS
     Dosage: 200 MG, 1X/DAY AT BEDTIME
     Route: 048
  2. CLOZAPINE. [Suspect]
     Active Substance: CLOZAPINE
     Indication: PSYCHOTIC DISORDER
     Dosage: 200 MG, 1X/DAY IN THE MORNING
     Route: 048
  3. BENZTROPINE. [Suspect]
     Active Substance: BENZTROPINE
     Indication: SALIVARY HYPERSECRETION
     Dosage: 1 MG, 1X/DAY AT BEDTIME
     Route: 048
     Dates: end: 20191115
  4. SERTRALINE [Suspect]
     Active Substance: SERTRALINE HYDROCHLORIDE
     Indication: DEPRESSION
     Dosage: 50 MG, 1X/DAY IN THE MORNING
     Route: 048
     Dates: start: 20191016, end: 201911
  5. SERTRALINE [Suspect]
     Active Substance: SERTRALINE HYDROCHLORIDE
     Indication: ANXIETY
  6. CLONAZEPAM. [Concomitant]
     Active Substance: CLONAZEPAM
     Dosage: 0.5 MG, 2X/DAY AS NEEDED
     Route: 048
     Dates: end: 20191029
  7. CLONAZEPAM. [Concomitant]
     Active Substance: CLONAZEPAM
     Dosage: 0.25 MG, 1X/DAY IN THE MORNING
     Route: 048
     Dates: start: 20191029
  8. CLOZAPINE. [Suspect]
     Active Substance: CLOZAPINE
     Dosage: 600 MG, 1X/DAY AT BEDTIME
     Route: 048
     Dates: start: 20201113
  9. CLOZAPINE. [Suspect]
     Active Substance: CLOZAPINE
     Indication: OBSESSIVE THOUGHTS
  10. CLOZAPINE. [Suspect]
     Active Substance: CLOZAPINE
     Indication: OBSESSIVE THOUGHTS
     Dosage: 400 MG, 1X/DAY AT BEDTIME
     Route: 048
     Dates: end: 20201112
  11. CLOZAPINE. [Suspect]
     Active Substance: CLOZAPINE
     Indication: OBSESSIVE THOUGHTS
  12. CLOZAPINE. [Suspect]
     Active Substance: CLOZAPINE
     Indication: PSYCHOTIC DISORDER
  13. CLOZAPINE. [Suspect]
     Active Substance: CLOZAPINE
     Indication: PSYCHOTIC DISORDER
     Dosage: 50 MG, 1X/DAY AT BEDTIME ALONG WITH TWO 200 MG TABLETS TO EQUAL 450 MG AT BEDTIME
     Route: 048
     Dates: end: 20191021
  14. SERTRALINE [Suspect]
     Active Substance: SERTRALINE HYDROCHLORIDE
     Indication: DEPRESSION
     Dosage: 450 MG, 1X/DAY
     Route: 048
     Dates: end: 20191016
  15. SERTRALINE [Suspect]
     Active Substance: SERTRALINE HYDROCHLORIDE
     Indication: ANXIETY
  16. CLOZAPINE. [Suspect]
     Active Substance: CLOZAPINE
     Indication: PSYCHOTIC DISORDER
     Dosage: 100 MG, 1X/DAY AT BEDTIME ALONG WITH TWO 200 MG TABLETS TO EQUAL 500 MG AT BEDTIME
     Route: 048
     Dates: start: 20191022, end: 20191112
  17. BENZTROPINE. [Suspect]
     Active Substance: BENZTROPINE
     Indication: SALIVARY HYPERSECRETION
  18. CLONAZEPAM. [Concomitant]
     Active Substance: CLONAZEPAM
     Dosage: 0.25 MG, 1X/DAY AS NEEDED
     Route: 048
     Dates: start: 20191029, end: 201911

REACTIONS (17)
  - Terminal insomnia [Unknown]
  - Depressed mood [Unknown]
  - Nervousness [Unknown]
  - Tachyphrenia [Unknown]
  - Disturbance in attention [Unknown]
  - Schizoaffective disorder bipolar type [Recovering/Resolving]
  - Libido disorder [Recovering/Resolving]
  - Cognitive disorder [Unknown]
  - Poor quality sleep [Unknown]
  - Suicidal ideation [Recovering/Resolving]
  - Memory impairment [Recovered/Resolved]
  - Stress [Recovering/Resolving]
  - Agitation [Unknown]
  - Hospitalisation [Recovered/Resolved]
  - Anxiety [Recovering/Resolving]
  - Irritability [Unknown]
  - Homicidal ideation [Recovering/Resolving]

NARRATIVE: CASE EVENT DATE: 2019
